FAERS Safety Report 19860575 (Version 1)
Quarter: 2021Q3

REPORT INFORMATION
  Report Type: Spontaneous
  Country: US (occurrence: US)
  Receive Date: 20210921
  Receipt Date: 20210921
  Transmission Date: 20211014
  Serious: Yes (Death, Hospitalization, Other)
  Sender: FDA-Public Use
  Company Number: US-ENDO PHARMACEUTICALS INC-2021-011332

PATIENT
  Age: 62 Year
  Sex: Female

DRUGS (8)
  1. NORCO [Suspect]
     Active Substance: ACETAMINOPHEN\HYDROCODONE BITARTRATE
     Indication: PAIN
     Dosage: UNK UNKNOWN, UNKNOWN
     Route: 065
     Dates: start: 2014, end: 2016
  2. OXYCODONE HYDROCHLORIDE. [Suspect]
     Active Substance: OXYCODONE HYDROCHLORIDE
     Indication: PAIN
     Dosage: UNK UNKNOWN, UNKNOWN
     Route: 065
  3. PERCOCET [Suspect]
     Active Substance: ACETAMINOPHEN\OXYCODONE HYDROCHLORIDE
     Indication: PAIN
     Dosage: 28 DF, DAILY
     Route: 065
     Dates: start: 2014, end: 2016
  4. ALCOHOL. [Suspect]
     Active Substance: ALCOHOL
     Indication: PRODUCT USED FOR UNKNOWN INDICATION
     Dosage: UNK UNKNOWN, UNKNOWN
     Route: 065
  5. OXYCONTIN [Suspect]
     Active Substance: OXYCODONE HYDROCHLORIDE
     Indication: PAIN
     Dosage: UNK UNKNOWN, UNKNOWN
     Route: 065
  6. HYDROCODONE [Suspect]
     Active Substance: HYDROCODONE
     Indication: PAIN
     Dosage: UNK UNKNOWN, UNKNOWN
     Route: 065
  7. FENTANYL. [Suspect]
     Active Substance: FENTANYL
     Indication: PAIN
     Dosage: UNK UNKNOWN, UNKNOWN
     Route: 065
  8. SOMA [Suspect]
     Active Substance: CARISOPRODOL
     Indication: PAIN
     Dosage: UNK UNKNOWN, UNKNOWN
     Route: 065

REACTIONS (21)
  - Death [Fatal]
  - Loss of consciousness [Unknown]
  - Arthralgia [Unknown]
  - Fall [Unknown]
  - Squamous cell carcinoma of skin [Unknown]
  - Depression [Unknown]
  - Dependence [Unknown]
  - Spinal cord neoplasm [Unknown]
  - Overdose [Unknown]
  - Loss of personal independence in daily activities [Unknown]
  - Mood altered [Unknown]
  - Discomfort [Unknown]
  - Anxiety [Unknown]
  - Nervousness [Unknown]
  - Squamous cell carcinoma of lung [Unknown]
  - Loss of consciousness [Unknown]
  - Overdose [Unknown]
  - Emotional distress [Unknown]
  - Drug abuse [Unknown]
  - Pain [Unknown]
  - Suicidal ideation [Unknown]

NARRATIVE: CASE EVENT DATE: 2013
